FAERS Safety Report 9257165 (Version 1)
Quarter: 2013Q2

REPORT INFORMATION
  Report Type: Spontaneous
  Country: US (occurrence: US)
  Receive Date: 20130426
  Receipt Date: 20130426
  Transmission Date: 20140414
  Serious: Yes (Hospitalization)
  Sender: FDA-Public Use
  Company Number: US-ROCHE-1218194

PATIENT
  Sex: Female

DRUGS (10)
  1. XELODA [Suspect]
     Indication: COLORECTAL CANCER STAGE IV
     Route: 042
  2. XELODA [Suspect]
     Indication: METASTASES TO LUNG
     Route: 048
  3. XELODA [Suspect]
     Dosage: DOSE REDUCED
     Route: 048
  4. XELODA [Suspect]
     Dosage: DOSE REDUCED
     Route: 048
  5. AVASTIN [Suspect]
     Indication: COLORECTAL CANCER STAGE IV
     Route: 042
  6. AVASTIN [Suspect]
     Indication: METASTASES TO LUNG
  7. LEXAPRO [Concomitant]
     Indication: ANXIETY
     Route: 048
  8. LAMICTAL [Concomitant]
     Indication: ANXIETY
     Route: 048
  9. PRAVASTATIN [Concomitant]
     Route: 048
  10. FENOFIBRATE [Concomitant]
     Route: 048

REACTIONS (5)
  - Diarrhoea haemorrhagic [Recovered/Resolved]
  - Back pain [Recovering/Resolving]
  - Arthralgia [Recovering/Resolving]
  - Rash [Recovered/Resolved]
  - Fatigue [Not Recovered/Not Resolved]
